FAERS Safety Report 25152383 (Version 1)
Quarter: 2025Q2

REPORT INFORMATION
  Report Type: Spontaneous
  Country: US (occurrence: US)
  Receive Date: 20250402
  Receipt Date: 20250402
  Transmission Date: 20250717
  Serious: No
  Sender: XTTRIUM
  Company Number: US-Xttrium Laboratories, Inc-2174160

PATIENT
  Sex: Female

DRUGS (1)
  1. DEXTROMETHORPHAN HYDROBROMIDE\PROMETHAZINE HYDROCHLORIDE [Suspect]
     Active Substance: DEXTROMETHORPHAN HYDROBROMIDE\PROMETHAZINE HYDROCHLORIDE

REACTIONS (15)
  - Dry mouth [Unknown]
  - Tremor [Unknown]
  - Dysphagia [Unknown]
  - Muscle twitching [Unknown]
  - Blood pressure decreased [Unknown]
  - Muscle tightness [Unknown]
  - Wheezing [Unknown]
  - Pruritus [Unknown]
  - Eye disorder [Unknown]
  - Nervousness [Unknown]
  - Heart rate irregular [Unknown]
  - Confusional state [Unknown]
  - Muscle spasms [Unknown]
  - Asthenia [Unknown]
  - Fatigue [Unknown]

NARRATIVE: CASE EVENT DATE: 20250304
